FAERS Safety Report 22167130 (Version 1)
Quarter: 2023Q2

REPORT INFORMATION
  Report Type: Spontaneous
  Country: US (occurrence: US)
  Receive Date: 20230403
  Receipt Date: 20230403
  Transmission Date: 20230721
  Serious: Yes (Other)
  Sender: FDA-Public Use
  Company Number: US-PFIZER INC-202300140098

PATIENT
  Age: 51 Year
  Sex: Female

DRUGS (18)
  1. XELJANZ XR [Suspect]
     Active Substance: TOFACITINIB CITRATE
     Dosage: UNK
     Dates: start: 20230118
  2. CRESTOR [Concomitant]
     Active Substance: ROSUVASTATIN CALCIUM
     Dosage: UNK
  3. FLORASTOR [LACTOBACILLUS ACIDOPHILUS] [Concomitant]
     Dosage: UNK
  4. AZO [Concomitant]
     Active Substance: PHENAZOPYRIDINE HYDROCHLORIDE
     Dosage: UNK
  5. MAXALT [Concomitant]
     Active Substance: RIZATRIPTAN BENZOATE
     Dosage: UNK
  6. SINGULAIR [Concomitant]
     Active Substance: MONTELUKAST SODIUM
     Dosage: UNK
  7. EXCEDRIN MIGRAINE [Concomitant]
     Active Substance: ACETAMINOPHEN\ASPIRIN\CAFFEINE
     Dosage: UNK
  8. LYRICA [Concomitant]
     Active Substance: PREGABALIN
     Dosage: UNK
  9. METOPROLOL [Concomitant]
     Active Substance: METOPROLOL
     Dosage: UNK
  10. MAGNESIUM [Concomitant]
     Active Substance: MAGNESIUM
     Dosage: UNK
  11. HYDROXYCHLOROQUINE [Concomitant]
     Active Substance: HYDROXYCHLOROQUINE
     Dosage: UNK
  12. ESTRADIOL [Concomitant]
     Active Substance: ESTRADIOL
     Dosage: UNK
  13. IBUPROFEN [Concomitant]
     Active Substance: IBUPROFEN
     Dosage: UNK
  14. EPINEPHRINE [Concomitant]
     Active Substance: EPINEPHRINE
     Dosage: UNK
  15. CYCLOBENZAPRINE [Concomitant]
     Active Substance: CYCLOBENZAPRINE
     Dosage: UNK
  16. OMEPRAZOLE [Concomitant]
     Active Substance: OMEPRAZOLE
     Dosage: UNK
  17. FOLIC ACID [Concomitant]
     Active Substance: FOLIC ACID
     Dosage: UNK
  18. DIETARY SUPPLEMENT [Concomitant]
     Active Substance: DIETARY SUPPLEMENT
     Dosage: UNK

REACTIONS (2)
  - Pancreatitis [Recovering/Resolving]
  - Illness [Recovering/Resolving]

NARRATIVE: CASE EVENT DATE: 20230318
